FAERS Safety Report 9193456 (Version 2)
Quarter: 2013Q2

REPORT INFORMATION
  Report Type: Spontaneous
  Country: US (occurrence: US)
  Receive Date: 20130327
  Receipt Date: 20130404
  Transmission Date: 20140414
  Serious: Yes (Hospitalization, Other)
  Sender: FDA-Public Use
  Company Number: US-ROCHE-1205756

PATIENT
  Age: 63 Year
  Sex: Female

DRUGS (8)
  1. KADCYLA [Suspect]
     Indication: BREAST CANCER METASTATIC
     Route: 042
     Dates: start: 20130315
  2. HERCEPTIN [Suspect]
     Indication: PRODUCT USED FOR UNKNOWN INDICATION
     Route: 065
  3. XELODA [Suspect]
     Indication: PRODUCT USED FOR UNKNOWN INDICATION
     Route: 065
  4. TYKERB [Concomitant]
  5. ADVIL [Concomitant]
     Indication: PAIN
     Route: 048
  6. COMPAZINE [Concomitant]
     Indication: NAUSEA
     Route: 048
  7. PRILOSEC [Concomitant]
     Route: 048
  8. TRAZODONE [Concomitant]
     Route: 048

REACTIONS (4)
  - Ataxia [Recovered/Resolved]
  - Mental status changes [Unknown]
  - Headache [Recovered/Resolved]
  - Muscular weakness [Recovered/Resolved]
